FAERS Safety Report 24138311 (Version 3)
Quarter: 2024Q4

REPORT INFORMATION
  Report Type: Spontaneous
  Country: US (occurrence: US)
  Receive Date: 20240725
  Receipt Date: 20241223
  Transmission Date: 20250115
  Serious: No
  Sender: BRISTOL-MYERS SQUIBB COMPANY
  Company Number: US-BRISTOL-MYERS SQUIBB COMPANY-2024-118160

PATIENT
  Age: 47 Year
  Sex: Male

DRUGS (2)
  1. REVLIMID [Suspect]
     Active Substance: LENALIDOMIDE
     Indication: Plasma cell myeloma
     Route: 048
     Dates: start: 20240605
  2. REVLIMID [Suspect]
     Active Substance: LENALIDOMIDE

REACTIONS (5)
  - Rash [Unknown]
  - Pruritus [Unknown]
  - Fatigue [Unknown]
  - Oedema [Unknown]
  - Urticaria [Unknown]
